FAERS Safety Report 24278967 (Version 2)
Quarter: 2024Q4

REPORT INFORMATION
  Report Type: Spontaneous
  Country: FR (occurrence: FR)
  Receive Date: 20240903
  Receipt Date: 20241029
  Transmission Date: 20250114
  Serious: Yes (Other)
  Sender: MERCK
  Company Number: None

PATIENT
  Age: 41 Year
  Sex: Female
  Weight: 91 kg

DRUGS (4)
  1. KEYTRUDA [Suspect]
     Active Substance: PEMBROLIZUMAB
     Indication: Triple negative breast cancer
     Dosage: 200
     Route: 042
     Dates: start: 20231124, end: 20240329
  2. DOXORUBICIN HYDROCHLORIDE [Concomitant]
     Active Substance: DOXORUBICIN HYDROCHLORIDE
     Indication: Triple negative breast cancer
     Dosage: 60MG/M2 D1, RESUME ON D21
     Route: 042
     Dates: start: 20240216, end: 20240430
  3. CYCLOPHOSPHAMIDE [Concomitant]
     Active Substance: CYCLOPHOSPHAMIDE
     Indication: Triple negative breast cancer
     Dosage: 600MG/M2 D1, RESUME D21
     Route: 042
     Dates: start: 20240216, end: 20240430
  4. FILGRASTIM [Concomitant]
     Active Substance: FILGRASTIM
     Indication: Colony stimulating factor therapy
     Dosage: 48IU TO START 72 HOURS AFTER EACH CHEMO BY DOXO-CYCLO, FOR 5 DAYS
     Route: 058
     Dates: start: 20240411, end: 20240507

REACTIONS (2)
  - Myalgia [Recovered/Resolved with Sequelae]
  - Arthralgia [Recovered/Resolved with Sequelae]

NARRATIVE: CASE EVENT DATE: 20240411
